FAERS Safety Report 5925500-4 (Version None)
Quarter: 2008Q4

REPORT INFORMATION
  Report Type: 
  Country: None (occurrence: None)
  Receive Date: 20081021
  Receipt Date: 20081013
  Transmission Date: 20090506
  Serious: Yes (Other)
  Sender: FDA-Public Use
  Company Number: PHBS2008NO02983

PATIENT
  Age: 35 Year
  Sex: Male

DRUGS (2)
  1. RITALIN [Suspect]
     Indication: ATTENTION DEFICIT/HYPERACTIVITY DISORDER
     Dosage: 20 MG/DAY
     Route: 048
  2. RITALIN [Suspect]
     Dosage: 40 MG/DAY
     Route: 048

REACTIONS (2)
  - CHEST DISCOMFORT [None]
  - PALPITATIONS [None]
